FAERS Safety Report 9455739 (Version 2)
Quarter: 2013Q3

REPORT INFORMATION
  Report Type: Report from Study
  Country: US (occurrence: US)
  Receive Date: 20130813
  Receipt Date: 20130826
  Transmission Date: 20140515
  Serious: Yes (Other)
  Sender: FDA-Public Use
  Company Number: US-SANOFI-AVENTIS-2013SA075904

PATIENT
  Age: 24 Year
  Sex: Male

DRUGS (1)
  1. AUBAGIO [Suspect]
     Indication: MULTIPLE SCLEROSIS
     Dosage: TAKEN FROM- 4 DAYS AGO
     Route: 048
     Dates: start: 201307

REACTIONS (7)
  - Multiple sclerosis [Unknown]
  - VIIth nerve paralysis [Recovered/Resolved]
  - Fatigue [Not Recovered/Not Resolved]
  - Pyrexia [Unknown]
  - Influenza [Recovered/Resolved]
  - Tension [Not Recovered/Not Resolved]
  - Headache [Not Recovered/Not Resolved]
